FAERS Safety Report 8889309 (Version 1)
Quarter: 2012Q4

REPORT INFORMATION
  Report Type: 
  Country: US (occurrence: US)
  Receive Date: 20121106
  Receipt Date: 20121106
  Transmission Date: 20130627
  Serious: No
  Sender: FDA-Public Use
  Company Number: US-BAUSCH-BL-2012-000949

PATIENT
  Age: 68 Year
  Sex: Female

DRUGS (1)
  1. LOTEPREDNOL ETABONATE [Suspect]
     Indication: ECZEMA EYELIDS
     Dosage: Three times per day
     Route: 061
     Dates: start: 20120903, end: 20120913

REACTIONS (2)
  - Off label use [Unknown]
  - Eyelid oedema [Recovered/Resolved]
